FAERS Safety Report 12425482 (Version 7)
Quarter: 2019Q4

REPORT INFORMATION
  Report Type: Spontaneous
  Country: SE (occurrence: SE)
  Receive Date: 20160531
  Receipt Date: 20191021
  Transmission Date: 20200122
  Serious: Yes (Life-Threatening, Other)
  Sender: FDA-Public Use
  Company Number: SE-TEVA-663176ISR

PATIENT
  Age: 37 Year
  Sex: Female
  Weight: 80 kg

DRUGS (7)
  1. OXYTOCIN. [Concomitant]
     Active Substance: OXYTOCIN
  2. MISOPROSTOL. [Concomitant]
     Active Substance: MISOPROSTOL
  3. ROPIVACAINE 7.5 MG/ML [Suspect]
     Active Substance: ROPIVACAINE
     Indication: ANAESTHESIA
     Dosage: TOP UP BOLUS OF 3 + 12 ML ROPIVACAINE
     Route: 008
  4. PHENYLEPHRINE [Concomitant]
     Active Substance: PHENYLEPHRINE HYDROCHLORIDE
     Indication: BLOOD PRESSURE ABNORMAL
     Dosage: REPEATED DOSES
  5. DINOPROSTONE. [Concomitant]
     Active Substance: DINOPROSTONE
  6. RINGER^S LACTATE SOLUTION? [Concomitant]
  7. FENTANYL. [Suspect]
     Active Substance: FENTANYL
     Indication: ANAESTHESIA
     Route: 008

REACTIONS (2)
  - Maternal exposure during pregnancy [Recovered/Resolved]
  - Circulatory collapse [Recovered/Resolved]
